FAERS Safety Report 7542623-7 (Version None)
Quarter: 2011Q2

REPORT INFORMATION
  Report Type: 
  Country: None (occurrence: None)
  Receive Date: 20110613
  Receipt Date: 20110606
  Transmission Date: 20111010
  Serious: Yes (Other)
  Sender: FDA-Public Use
  Company Number: PHHY2011AT49159

PATIENT
  Age: 42 Year
  Sex: Female
  Weight: 163 kg

DRUGS (3)
  1. VOLTAREN [Concomitant]
     Indication: NEURALGIA
     Dosage: 1 DF, TID
  2. VALACYCLOVIR [Suspect]
     Indication: HERPES ZOSTER
     Dosage: 1000 MG, TID
  3. CERAZETTE [Concomitant]
     Indication: CONTRACEPTION
     Dosage: 1 DF/DAY

REACTIONS (1)
  - METRORRHAGIA [None]
